FAERS Safety Report 5860802-1 (Version None)
Quarter: 2008Q3

REPORT INFORMATION
  Report Type: 
  Country: None (occurrence: None)
  Receive Date: 20080827
  Receipt Date: 20071125
  Transmission Date: 20090109
  Serious: No
  Sender: FDA-Public Use
  Company Number: US-ABBOTT-07P-163-0426704-00

PATIENT
  Age: 68 Year
  Sex: Male
  Weight: 77.18 kg

DRUGS (8)
  1. NIASPAN [Suspect]
     Indication: BLOOD CHOLESTEROL
     Route: 048
     Dates: start: 20071001
  2. FISH OIL [Concomitant]
     Indication: DRUG USE FOR UNKNOWN INDICATION
  3. METOPROLOL TARTRATE [Concomitant]
     Indication: BLOOD PRESSURE
  4. AMLODIPINE [Concomitant]
     Indication: BLOOD PRESSURE
  5. FOSINOPRIL SODIUM [Concomitant]
     Indication: BLOOD PRESSURE
  6. L-CARNITINE [Concomitant]
     Indication: ATRIAL FIBRILLATION
     Dates: start: 20071123
  7. L-CARNITINE [Concomitant]
     Indication: CARDIAC DISORDER
  8. COLESEVELAM HYDROCHLORIDE [Concomitant]
     Indication: BLOOD CHOLESTEROL

REACTIONS (2)
  - ARTHRALGIA [None]
  - MYALGIA [None]
